FAERS Safety Report 8593795-7 (Version None)
Quarter: 2012Q3

REPORT INFORMATION
  Report Type: 
  Country: None (occurrence: None)
  Receive Date: 20120814
  Receipt Date: 20120730
  Transmission Date: 20120928
  Serious: Yes (Hospitalization)
  Sender: FDA-Public Use
  Company Number: CO-BAXTER-2012BAX013352

PATIENT
  Sex: Male
  Weight: 48 kg

DRUGS (1)
  1. ADVATE [Suspect]
     Dosage: FIRST ADMINISTRATION
     Route: 042
     Dates: start: 20120727, end: 20120727

REACTIONS (4)
  - VOMITING [None]
  - DIARRHOEA [None]
  - FAECES DISCOLOURED [None]
  - GINGIVAL BLEEDING [None]
